FAERS Safety Report 15683230 (Version 1)
Quarter: 2018Q4

REPORT INFORMATION
  Report Type: Spontaneous
  Country: ES (occurrence: ES)
  Receive Date: 20181204
  Receipt Date: 20181204
  Transmission Date: 20190205
  Serious: Yes (Hospitalization)
  Sender: FDA-Public Use
  Company Number: ES-TEVA-2018-ES-981354

PATIENT
  Age: 71 Year
  Sex: Male

DRUGS (10)
  1. LANSOPRAZOL 30 MG C?PSULA [Concomitant]
     Route: 065
  2. DUTASTERIDA + TAMSULOSINA [Concomitant]
     Active Substance: DUTASTERIDE\TAMSULOSIN
     Route: 065
  3. METFORMINA 850 MG COMPRIMIDO [Concomitant]
     Route: 065
  4. ADIRO 100 MG COMPRIMIDOS GASTRORRESISTENTES EFG, 30 COMPRIMIDOS [Concomitant]
     Active Substance: ASPIRIN
     Route: 065
  5. TARKA 180 MG/ 2 MG CAPSULAS DE LIBERACION MODIFICADA , 28 C?PSULAS [Concomitant]
     Route: 065
  6. TRAZODONA 100 MG COMPRIMIDO [Concomitant]
     Route: 065
  7. FERBISOL 100 MG CAPSULAS GASTRORRESISTENTES, 50 C?PSULAS [Concomitant]
     Route: 065
  8. BISOPROLOL 5 MG COMPRIMIDO [Suspect]
     Active Substance: BISOPROLOL
     Indication: HYPERTROPHIC CARDIOMYOPATHY
     Route: 048
     Dates: start: 20160418
  9. INSULATARD FLEXPEN 100 UI/ML SUSPENSION INYECTABLE EN UNA PLUMA PRECAR [Concomitant]
     Route: 065
  10. FLUVASTATINA MYLAN 20 MG CAPSULAS DURAS EFG , 28 C?PSULAS [Concomitant]
     Route: 065

REACTIONS (1)
  - Atrioventricular block [Recovered/Resolved]

NARRATIVE: CASE EVENT DATE: 20180812
